FAERS Safety Report 12482269 (Version 3)
Quarter: 2016Q4

REPORT INFORMATION
  Report Type: Report from Study
  Country: None (occurrence: US)
  Receive Date: 20160620
  Receipt Date: 20161202
  Transmission Date: 20170207
  Serious: Yes (Hospitalization, Other)
  Sender: FDA-Public Use
  Company Number: US-ABBVIE-16K-163-1652983-00

PATIENT
  Sex: Female
  Weight: 67.19 kg

DRUGS (3)
  1. CILOSTAZOL. [Suspect]
     Active Substance: CILOSTAZOL
     Indication: ARTERIAL OCCLUSIVE DISEASE
     Route: 065
     Dates: start: 2016
  2. HUMIRA [Suspect]
     Active Substance: ADALIMUMAB
     Indication: RHEUMATOID ARTHRITIS
     Route: 058
     Dates: start: 20140714
  3. LOVASTATIN. [Concomitant]
     Active Substance: LOVASTATIN
     Indication: DYSLIPIDAEMIA

REACTIONS (11)
  - Fatigue [Unknown]
  - Tricuspid valve incompetence [Unknown]
  - Arterial occlusive disease [Recovering/Resolving]
  - Mitral valve incompetence [Unknown]
  - Dyspnoea [Unknown]
  - Gait disturbance [Recovering/Resolving]
  - Aortic valve calcification [Unknown]
  - Headache [Unknown]
  - Burning sensation [Recovering/Resolving]
  - Myocardial infarction [Unknown]
  - Chest pain [Unknown]

NARRATIVE: CASE EVENT DATE: 2016
